FAERS Safety Report 16043438 (Version 2)
Quarter: 2019Q1

REPORT INFORMATION
  Report Type: Report from Study
  Country: BG (occurrence: BG)
  Receive Date: 20190306
  Receipt Date: 20190312
  Transmission Date: 20190418
  Serious: Yes (Hospitalization)
  Sender: FDA-Public Use
  Company Number: BG-AMGEN-BGRCT2019025133

PATIENT
  Age: 7 Year
  Sex: Female
  Weight: 15.7 kg

DRUGS (2)
  1. OROCAL (CALCIUM CARBONATE\CHOLECALCIFEROL) [Suspect]
     Active Substance: CALCIUM CARBONATE\CHOLECALCIFEROL
     Indication: PRODUCT USED FOR UNKNOWN INDICATION
     Dosage: 500 MILLIGRAM AND 400 INTERNATIONAL UNIT
     Route: 048
     Dates: start: 20180704
  2. DENOSUMAB [Suspect]
     Active Substance: DENOSUMAB
     Indication: OSTEOGENESIS IMPERFECTA
     Dosage: 0.24 MILLILITER, Q6MO
     Route: 058
     Dates: start: 20180604

REACTIONS (1)
  - Tenosynovitis [Not Recovered/Not Resolved]

NARRATIVE: CASE EVENT DATE: 20190207
